FAERS Safety Report 6304826-9 (Version None)
Quarter: 2009Q3

REPORT INFORMATION
  Report Type: 
  Country: None (occurrence: None)
  Receive Date: 20090811
  Receipt Date: 20090402
  Transmission Date: 20100115
  Serious: Yes (Hospitalization)
  Sender: FDA-Public Use
  Company Number: PHHY2009KR11307

PATIENT
  Sex: Male
  Weight: 73.8 kg

DRUGS (13)
  1. CERTICAN [Suspect]
     Indication: RENAL TRANSPLANT
     Dosage: 1.5 MG
     Route: 048
     Dates: start: 20080816
  2. CERTICAN [Suspect]
     Dosage: 3 MG
     Dates: start: 20080817, end: 20080826
  3. CERTICAN [Suspect]
     Dosage: 2 MG
     Dates: start: 20080827, end: 20080831
  4. CERTICAN [Suspect]
     Dosage: 1.5 MG
     Dates: start: 20080901
  5. CERTICAN [Suspect]
     Dosage: 1 MG
     Dates: start: 20080902, end: 20080919
  6. CERTICAN [Suspect]
     Dosage: 2 MG
     Dates: start: 20080920, end: 20090128
  7. CERTICAN [Suspect]
     Dosage: 1.5 MG
     Dates: start: 20090129
  8. CYCLOSPORINE [Concomitant]
     Dosage: UNK
     Dates: start: 20080805
  9. DIOVAN [Concomitant]
     Indication: HYPERTENSION
     Dosage: UNK
     Dates: start: 20080430
  10. CORTICOSTEROID NOS [Concomitant]
     Dosage: UNK
     Dates: start: 20010914
  11. ONE-ALPHA [Concomitant]
     Indication: OSTEOPOROSIS PROPHYLAXIS
     Dosage: UNK
     Dates: start: 20070820, end: 20081227
  12. LESCOL XL [Concomitant]
     Indication: HYPERCHOLESTEROLAEMIA
     Dosage: UNK
     Dates: start: 20040722
  13. SANDIMMUNE [Concomitant]
     Indication: IMMUNOSUPPRESSION
     Dosage: 50MG
     Dates: start: 20080812

REACTIONS (2)
  - LYMPHOCELE [None]
  - THERAPEUTIC PROCEDURE [None]
